FAERS Safety Report 8560906-9 (Version None)
Quarter: 2012Q3

REPORT INFORMATION
  Report Type: 
  Country: None (occurrence: None)
  Receive Date: 20120802
  Receipt Date: 20120724
  Transmission Date: 20120928
  Serious: Yes (Other)
  Sender: FDA-Public Use
  Company Number: JP-BRISTOL-MYERS SQUIBB COMPANY-16812729

PATIENT

DRUGS (1)
  1. ERBITUX [Suspect]
     Dosage: INF
     Route: 042

REACTIONS (1)
  - MYOCARDIAL INFARCTION [None]
